FAERS Safety Report 8922138 (Version 1)
Quarter: 2012Q4

REPORT INFORMATION
  Report Type: 
  Country: US (occurrence: US)
  Receive Date: 20121123
  Receipt Date: 20121123
  Transmission Date: 20130627
  Serious: Yes (Death)
  Sender: FDA-Public Use
  Company Number: US-009507513-1211USA008630

PATIENT
  Sex: Female

DRUGS (2)
  1. TIMOPTIC [Suspect]
  2. XALATAN [Suspect]

REACTIONS (1)
  - Death [Fatal]
